FAERS Safety Report 4330971-3 (Version None)
Quarter: 2004Q1

REPORT INFORMATION
  Report Type: 
  Country: None (occurrence: None)
  Receive Date: 20040329
  Receipt Date: 20040317
  Transmission Date: 20041129
  Serious: Yes (Life-Threatening, Hospitalization)
  Sender: FDA-Public Use
  Company Number: 2004-00158FE

PATIENT
  Age: 33 Year
  Sex: Male

DRUGS (1)
  1. PENTASA [Suspect]
     Indication: COLITIS ULCERATIVE
     Dosage: ORALLY
     Route: 048
     Dates: start: 20040301, end: 20040315

REACTIONS (8)
  - CHEST PAIN [None]
  - DILATATION VENTRICULAR [None]
  - ELECTROCARDIOGRAM ABNORMAL [None]
  - MYOCARDITIS [None]
  - PERICARDIAL EFFUSION [None]
  - TROPONIN INCREASED [None]
  - VENTRICULAR FIBRILLATION [None]
  - VENTRICULAR HYPOKINESIA [None]
